FAERS Safety Report 24187125 (Version 3)
Quarter: 2024Q3

REPORT INFORMATION
  Report Type: Spontaneous
  Country: US (occurrence: US)
  Receive Date: 20240808
  Receipt Date: 20240910
  Transmission Date: 20241017
  Serious: Yes (Hospitalization)
  Sender: JOHNSON AND JOHNSON
  Company Number: US-JNJFOC-20240809951

PATIENT
  Age: 69 Year
  Sex: Male
  Weight: 59 kg

DRUGS (18)
  1. DARZALEX [Suspect]
     Active Substance: DARATUMUMAB
     Indication: Primary amyloidosis
     Route: 065
     Dates: start: 20240327
  2. BORTEZOMIB [Suspect]
     Active Substance: BORTEZOMIB
     Indication: Primary amyloidosis
     Route: 058
     Dates: start: 20240327, end: 20240604
  3. CYCLOPHOSPHAMIDE [Concomitant]
     Active Substance: CYCLOPHOSPHAMIDE
     Indication: Primary amyloidosis
     Dates: start: 20240327
  4. DEXAMETHASONE [Concomitant]
     Active Substance: DEXAMETHASONE
     Indication: Primary amyloidosis
     Dates: start: 20240508
  5. PITAVASTATIN CALCIUM [Concomitant]
     Active Substance: PITAVASTATIN CALCIUM
     Dates: start: 2021
  6. INSULIN LISPRO [Concomitant]
     Active Substance: INSULIN LISPRO
     Dates: start: 20240301
  7. INSULINS AND ANALOGUES FOR INJECTION, LONG-ACTING [Concomitant]
     Dates: start: 20240301
  8. URSODIOL [Concomitant]
     Active Substance: URSODIOL
     Dates: start: 20240312
  9. FEBUXOSTAT [Concomitant]
     Active Substance: FEBUXOSTAT
     Dates: start: 20240312
  10. ACETAMINOPHEN [Concomitant]
     Active Substance: ACETAMINOPHEN
     Dates: start: 20240327
  11. MONTELUKAST [Concomitant]
     Active Substance: MONTELUKAST SODIUM
     Dates: start: 20240327
  12. DIPHENHYDRAMINE [Concomitant]
     Active Substance: DIPHENHYDRAMINE
     Dates: start: 20240327
  13. ACYCLOVIR [Concomitant]
     Active Substance: ACYCLOVIR
     Dates: start: 20240327
  14. PENTAMIDINE [Concomitant]
     Active Substance: PENTAMIDINE
     Dates: start: 20240402
  15. TOLVAPTAN [Concomitant]
     Active Substance: TOLVAPTAN
     Dates: start: 20240424
  16. FUROSEMIDE [Concomitant]
     Active Substance: FUROSEMIDE
     Dates: start: 20240521
  17. SPIRONOLACTONE [Concomitant]
     Active Substance: SPIRONOLACTONE
     Dates: start: 20240523
  18. AZOSEMIDE [Concomitant]
     Active Substance: AZOSEMIDE
     Dates: start: 20240622

REACTIONS (2)
  - Fluid retention [Recovering/Resolving]
  - Off label use [Unknown]
